FAERS Safety Report 5820350-1 (Version None)
Quarter: 2008Q3

REPORT INFORMATION
  Report Type: 
  Country: None (occurrence: None)
  Receive Date: 20080724
  Receipt Date: 20070613
  Transmission Date: 20090109
  Serious: No
  Sender: FDA-Public Use
  Company Number: A0655901A

PATIENT
  Age: 51 Year
  Sex: Male

DRUGS (3)
  1. AVANDIA [Suspect]
     Dosage: 8MG PER DAY
     Route: 048
     Dates: start: 20060101, end: 20070511
  2. GLIPIZIDE [Concomitant]
  3. GEODON [Concomitant]

REACTIONS (3)
  - BACK PAIN [None]
  - CHEST PAIN [None]
  - MUSCLE SPASMS [None]
